FAERS Safety Report 21762274 (Version 1)
Quarter: 2022Q4

REPORT INFORMATION
  Report Type: Spontaneous
  Country: DE (occurrence: DE)
  Receive Date: 20221221
  Receipt Date: 20221221
  Transmission Date: 20230113
  Serious: Yes (Other)
  Sender: FDA-Public Use
  Company Number: DE-AMGEN-DEUSP2022215442

PATIENT

DRUGS (1)
  1. ADALIMUMAB [Suspect]
     Active Substance: ADALIMUMAB
     Indication: Inflammatory bowel disease
     Dosage: UNK
     Route: 065

REACTIONS (30)
  - Cushing^s syndrome [Unknown]
  - Nephritis [Unknown]
  - Hepatic cirrhosis [Unknown]
  - Uveitis [Unknown]
  - Leukopenia [Unknown]
  - Thrombocytopenia [Unknown]
  - Personality change [Unknown]
  - Acne [Unknown]
  - Adverse drug reaction [Unknown]
  - Drug specific antibody [Unknown]
  - Episcleritis [Unknown]
  - Cheilitis [Unknown]
  - Iritis [Unknown]
  - Skin disorder [Unknown]
  - Liver disorder [Unknown]
  - Treatment failure [Unknown]
  - Musculoskeletal disorder [Unknown]
  - Faecal calprotectin increased [Unknown]
  - Therapeutic product effect incomplete [Unknown]
  - Nausea [Unknown]
  - Depression [Unknown]
  - Hepatic enzyme increased [Unknown]
  - Headache [Unknown]
  - Abdominal pain [Unknown]
  - Rash [Unknown]
  - Diarrhoea [Unknown]
  - Pancreatitis [Unknown]
  - Hypersensitivity [Unknown]
  - Urticaria [Unknown]
  - Psoriasis [Unknown]
